FAERS Safety Report 9271945 (Version 3)
Quarter: 2013Q2

REPORT INFORMATION
  Report Type: Report from Study
  Country: US (occurrence: US)
  Receive Date: 20130506
  Receipt Date: 20130606
  Transmission Date: 20140414
  Serious: Yes (Hospitalization)
  Sender: FDA-Public Use
  Company Number: US-ACTELION-A-NJ2013-82700

PATIENT
  Age: 62 Year
  Sex: Male

DRUGS (3)
  1. VELETRI [Suspect]
     Indication: PULMONARY ARTERIAL HYPERTENSION
     Dosage: 30.7 NG/KG, PER MIN
     Route: 041
     Dates: start: 20120213
  2. LETAIRIS [Concomitant]
  3. COUMADIN [Concomitant]

REACTIONS (2)
  - Gastrointestinal infection [Recovering/Resolving]
  - Clostridium difficile colitis [Recovering/Resolving]
